FAERS Safety Report 24764139 (Version 1)
Quarter: 2024Q4

REPORT INFORMATION
  Report Type: Spontaneous
  Country: US (occurrence: US)
  Receive Date: 20241223
  Receipt Date: 20241223
  Transmission Date: 20250114
  Serious: No
  Sender: NOBELPHARMA AMERICA, LLC
  Company Number: US-ARIS GLOBAL-NPA-2024-02135

PATIENT
  Age: 37 Year
  Sex: Female

DRUGS (1)
  1. HYFTOR [Suspect]
     Active Substance: SIROLIMUS
     Indication: Tuberous sclerosis complex
     Dosage: ^400MG BID^
     Route: 003
     Dates: start: 20240520

REACTIONS (1)
  - Rash [Recovering/Resolving]

NARRATIVE: CASE EVENT DATE: 20240520
